FAERS Safety Report 12200258 (Version 1)
Quarter: 2016Q1

REPORT INFORMATION
  Report Type: Spontaneous
  Country: US (occurrence: US)
  Receive Date: 20160322
  Receipt Date: 20160322
  Transmission Date: 20160526
  Serious: Yes (Hospitalization)
  Sender: FDA-Public Use
  Company Number: US-JNJFOC-20160311142

PATIENT
  Sex: Male
  Weight: 65.77 kg

DRUGS (3)
  1. MYLAN FENTANYL [Suspect]
     Active Substance: FENTANYL
     Indication: PAIN
     Route: 065
  2. DURAGESIC [Suspect]
     Active Substance: FENTANYL
     Indication: PAIN
     Route: 062
  3. XARELTO [Suspect]
     Active Substance: RIVAROXABAN
     Indication: THROMBOSIS
     Route: 048
     Dates: start: 2013

REACTIONS (13)
  - Seizure [Unknown]
  - Diarrhoea [Recovered/Resolved]
  - General physical health deterioration [Unknown]
  - Limb injury [Unknown]
  - Weight increased [Not Recovered/Not Resolved]
  - Pulmonary embolism [Not Recovered/Not Resolved]
  - Adverse drug reaction [Unknown]
  - Constipation [Recovered/Resolved]
  - Thrombosis [Not Recovered/Not Resolved]
  - Muscle contracture [Unknown]
  - Vomiting [Recovered/Resolved]
  - Deep vein thrombosis [Not Recovered/Not Resolved]
  - Nausea [Recovered/Resolved]

NARRATIVE: CASE EVENT DATE: 2015
